FAERS Safety Report 6424425-8 (Version None)
Quarter: 2009Q4

REPORT INFORMATION
  Report Type: 
  Country: None (occurrence: None)
  Receive Date: 20091103
  Receipt Date: 20091023
  Transmission Date: 20100525
  Serious: Yes (Hospitalization)
  Sender: FDA-Public Use
  Company Number: US-JNJFOC-20091008085

PATIENT
  Sex: Female
  Weight: 54.43 kg

DRUGS (5)
  1. REMICADE [Suspect]
     Indication: COLITIS ULCERATIVE
     Route: 042
  2. BALSALAZIDE [Concomitant]
  3. UNSPECIFIED BLOOD PRESSURE MEDS [Concomitant]
     Indication: BLOOD PRESSURE
  4. ANTIGLAUCOMA PREPARATIONS AND MIOTICS [Concomitant]
     Indication: GLAUCOMA
  5. ALL OTHER THERAPEUTIC PRODUCTS [Concomitant]
     Indication: GASTRIC DISORDER

REACTIONS (3)
  - BREAST CANCER [None]
  - FEELING ABNORMAL [None]
  - HEADACHE [None]
